FAERS Safety Report 5743355-8 (Version None)
Quarter: 2008Q2

REPORT INFORMATION
  Report Type: 
  Country: None (occurrence: None)
  Receive Date: 20080520
  Receipt Date: 20080509
  Transmission Date: 20081010
  Serious: Yes (Other)
  Sender: FDA-Public Use
  Company Number: GB-RANBAXY-2008RR-15115

PATIENT

DRUGS (4)
  1. CLARITHROMYCIN [Suspect]
     Indication: BACTEROIDES INFECTION
     Dosage: 250 MG, UNK
     Route: 048
     Dates: end: 20080416
  2. IPRATROPIUM BROMIDE [Concomitant]
  3. PREDNISOLONE [Concomitant]
     Dosage: 12 DF, QD
     Route: 048
     Dates: start: 20080411
  4. ALBUTEROL [Concomitant]

REACTIONS (2)
  - LETHARGY [None]
  - PALPITATIONS [None]
